FAERS Safety Report 17070656 (Version 1)
Quarter: 2019Q4

REPORT INFORMATION
  Report Type: Spontaneous
  Country: IL (occurrence: IL)
  Receive Date: 20191125
  Receipt Date: 20191125
  Transmission Date: 20200122
  Serious: Yes (Hospitalization, Other)
  Sender: FDA-Public Use
  Company Number: IL-009507513-1911ISR008396

PATIENT
  Age: 67 Year
  Sex: Male

DRUGS (1)
  1. KEYTRUDA [Suspect]
     Active Substance: PEMBROLIZUMAB
     Indication: LUNG SQUAMOUS CELL CARCINOMA METASTATIC
     Dosage: UNK, TWO TREATMENTS
     Dates: start: 201808

REACTIONS (1)
  - Anal abscess [Recovered/Resolved]
